FAERS Safety Report 21989929 (Version 3)
Quarter: 2023Q2

REPORT INFORMATION
  Report Type: Spontaneous
  Country: AR (occurrence: AR)
  Receive Date: 20230214
  Receipt Date: 20230405
  Transmission Date: 20230721
  Serious: No
  Sender: FDA-Public Use
  Company Number: AR-PFIZER INC-PV202300024490

PATIENT
  Age: 9 Year
  Sex: Female

DRUGS (1)
  1. GENOTROPIN [Suspect]
     Active Substance: SOMATROPIN
     Indication: Short stature
     Dosage: 1 TO 1.4 MG, 7 TIMES PER WEEK
     Dates: start: 20230202

REACTIONS (3)
  - Wrong technique in device usage process [Unknown]
  - Device breakage [Unknown]
  - Device physical property issue [Unknown]

NARRATIVE: CASE EVENT DATE: 20230206
